FAERS Safety Report 7628730-9 (Version None)
Quarter: 2011Q3

REPORT INFORMATION
  Report Type: 
  Country: None (occurrence: None)
  Receive Date: 20110721
  Receipt Date: 20110721
  Transmission Date: 20111222
  Serious: No
  Sender: FDA-Public Use
  Company Number: None

PATIENT

DRUGS (2)
  1. LOVENOX [Suspect]
  2. COUMADIN [Suspect]

REACTIONS (5)
  - PRODUCT QUALITY ISSUE [None]
  - OVERDOSE [None]
  - BRAIN MASS [None]
  - CEREBRAL HAEMORRHAGE [None]
  - SPEECH DISORDER [None]
